FAERS Safety Report 8069693-4 (Version None)
Quarter: 2012Q1

REPORT INFORMATION
  Report Type: 
  Country: None (occurrence: None)
  Receive Date: 20120119
  Receipt Date: 20120103
  Transmission Date: 20120608
  Serious: Yes (Hospitalization, Other)
  Sender: FDA-Public Use
  Company Number: 20110836

PATIENT
  Age: 74 Year
  Sex: Female

DRUGS (1)
  1. LIDOCAINE 1% INJ [Suspect]
     Dosage: EPIDURAL
     Route: 008
     Dates: start: 20110912

REACTIONS (3)
  - PRODUCT QUALITY ISSUE [None]
  - EXTRADURAL ABSCESS [None]
  - INFECTION [None]
